FAERS Safety Report 20229329 (Version 1)
Quarter: 2021Q4

REPORT INFORMATION
  Report Type: Spontaneous
  Country: US (occurrence: US)
  Receive Date: 20211225
  Receipt Date: 20211225
  Transmission Date: 20220303
  Serious: No
  Sender: FDA-Public Use
  Company Number: US-GSKCCFUS-Case-01251178_AE-73235

PATIENT
  Sex: Female

DRUGS (1)
  1. VENTOLIN HFA [Suspect]
     Active Substance: ALBUTEROL SULFATE
     Indication: Product used for unknown indication
     Dosage: 2 PUFF(S) 4 TIMES DAY AS NEEDED 90 MCG
     Route: 055

REACTIONS (3)
  - Asthenia [Unknown]
  - Wrong technique in device usage process [Unknown]
  - Drug ineffective [Unknown]
